FAERS Safety Report 9021947 (Version 1)
Quarter: 2013Q1

REPORT INFORMATION
  Report Type: Spontaneous
  Country: FR (occurrence: FR)
  Receive Date: 20130118
  Receipt Date: 20130118
  Transmission Date: 20140127
  Serious: Yes (Hospitalization)
  Sender: FDA-Public Use
  Company Number: FR-ROCHE-1181005

PATIENT
  Age: 69 Year
  Sex: Male

DRUGS (5)
  1. ZELBORAF [Suspect]
     Indication: PRODUCT USED FOR UNKNOWN INDICATION
     Route: 048
     Dates: start: 20121005
  2. ZELBORAF [Suspect]
     Route: 048
     Dates: start: 20121112
  3. AMIKACINE [Concomitant]
  4. TAZOCILLINE [Concomitant]
  5. CORTICOTHERAPY [Concomitant]
     Route: 065
     Dates: start: 20121124

REACTIONS (1)
  - Drug reaction with eosinophilia and systemic symptoms [Not Recovered/Not Resolved]
